FAERS Safety Report 20837545 (Version 1)
Quarter: 2022Q2

REPORT INFORMATION
  Report Type: Report from Study
  Country: CN (occurrence: CN)
  Receive Date: 20220517
  Receipt Date: 20220517
  Transmission Date: 20220721
  Serious: Yes (Hospitalization, Other)
  Sender: FDA-Public Use
  Company Number: CN-SUN PHARMACEUTICAL INDUSTRIES LTD-2022R1-336157

PATIENT
  Age: 34 Year
  Sex: Male

DRUGS (1)
  1. CHLORPHENIRAMINE [Suspect]
     Active Substance: CHLORPHENIRAMINE
     Indication: Product used for unknown indication
     Dosage: 4000 MG
     Route: 048

REACTIONS (16)
  - Toxicity to various agents [Unknown]
  - Rhabdomyolysis [Recovered/Resolved]
  - Acute kidney injury [Recovered/Resolved]
  - Suicide attempt [Unknown]
  - Dyspnoea [Recovered/Resolved]
  - Palpitations [Recovered/Resolved]
  - Nausea [Recovered/Resolved]
  - Delirium [Recovered/Resolved]
  - Speech disorder [Recovered/Resolved]
  - Mood swings [Recovered/Resolved]
  - Agitation [Recovered/Resolved]
  - Sinus tachycardia [Recovered/Resolved]
  - Loss of consciousness [Recovered/Resolved]
  - Clonus [Recovered/Resolved]
  - Eye movement disorder [Recovered/Resolved]
  - Cyanosis [Recovered/Resolved]
